FAERS Safety Report 14635093 (Version 2)
Quarter: 2018Q2

REPORT INFORMATION
  Report Type: Spontaneous
  Country: US (occurrence: US)
  Receive Date: 20180314
  Receipt Date: 20180403
  Transmission Date: 20180711
  Serious: Yes (Hospitalization, Other)
  Sender: FDA-Public Use
  Company Number: US-BAYER-2018-048291

PATIENT
  Age: 79 Year
  Sex: Female

DRUGS (8)
  1. DESLORATADINE. [Suspect]
     Active Substance: DESLORATADINE
     Indication: SEASONAL ALLERGY
     Dosage: 5 MG, QD
     Route: 048
     Dates: start: 1999
  2. PROVENTIL [Concomitant]
     Active Substance: ALBUTEROL
  3. NASACORT [Concomitant]
     Active Substance: TRIAMCINOLONE ACETONIDE
  4. EPIPEN [Concomitant]
     Active Substance: EPINEPHRINE
  5. ACCOLATE [Concomitant]
     Active Substance: ZAFIRLUKAST
  6. DULERA [Concomitant]
     Active Substance: FORMOTEROL FUMARATE DIHYDRATE\MOMETASONE FUROATE
     Dosage: UNK
  7. DESLORATADINE. [Suspect]
     Active Substance: DESLORATADINE
     Indication: ALLERGY PROPHYLAXIS
     Dosage: 5 MG, QD
     Route: 048
  8. XOPENEX [Concomitant]
     Active Substance: LEVALBUTEROL HYDROCHLORIDE

REACTIONS (6)
  - Bronchitis [Unknown]
  - Drug ineffective for unapproved indication [Unknown]
  - Seasonal allergy [Unknown]
  - Throat tightness [Unknown]
  - Inability to afford medication [Unknown]
  - Drug dose omission [Unknown]

NARRATIVE: CASE EVENT DATE: 20180306
